FAERS Safety Report 24148076 (Version 1)
Quarter: 2024Q3

REPORT INFORMATION
  Report Type: Spontaneous
  Country: CN (occurrence: CN)
  Receive Date: 20240729
  Receipt Date: 20240729
  Transmission Date: 20241017
  Serious: Yes (Life-Threatening)
  Sender: FRESENIUS KABI
  Company Number: CN-FreseniusKabi-FK202411609

PATIENT
  Age: 88 Year
  Sex: Female
  Weight: 31.5 kg

DRUGS (4)
  1. EGG PHOSPHOLIPIDS\GLYCERIN\MEDIUM-CHAIN TRIGLYCERIDES\SOYBEAN OIL [Suspect]
     Active Substance: EGG PHOSPHOLIPIDS\GLYCERIN\MEDIUM-CHAIN TRIGLYCERIDES\SOYBEAN OIL
     Indication: Nutritional supplementation
     Dosage: FORM OF ADMINISTRATION: INJECTION?ROUTE OF ADMINISTRATION: INTRAVENOUS DRIP
     Dates: start: 20240718, end: 20240718
  2. AMINO ACIDS, SOURCE UNSPECIFIED [Suspect]
     Active Substance: AMINO ACIDS, SOURCE UNSPECIFIED
     Indication: Nutritional supplementation
     Dosage: FORM: INJECTION
     Route: 041
     Dates: start: 20240718, end: 20240718
  3. 10 % Glucose injection [Concomitant]
     Indication: Vehicle solution use
     Dosage: FORM: INJECTION
     Route: 041
     Dates: start: 20240718, end: 20240718
  4. 50 % Glucose injection [Concomitant]
     Indication: Vehicle solution use
     Dosage: FORM: INJECTION
     Route: 041
     Dates: start: 20240718, end: 20240718

REACTIONS (1)
  - Anaphylactic shock [Recovering/Resolving]

NARRATIVE: CASE EVENT DATE: 20240718
